FAERS Safety Report 8985503 (Version 2)
Quarter: 2013Q1

REPORT INFORMATION
  Report Type: Spontaneous
  Country: IN (occurrence: IN)
  Receive Date: 20121226
  Receipt Date: 20130108
  Transmission Date: 20140127
  Serious: Yes (Hospitalization)
  Sender: FDA-Public Use
  Company Number: IN-BAYER-2012-134537

PATIENT
  Age: 24 Year
  Sex: Female

DRUGS (3)
  1. ULTRAVIST [Suspect]
     Indication: VENOGRAM
  2. ULTRAVIST [Suspect]
     Indication: DEEP VEIN THROMBOSIS
  3. ULTRAVIST [Suspect]
     Indication: VENOUS INSUFFICIENCY

REACTIONS (8)
  - Thrombophlebitis superficial [None]
  - Oedema peripheral [None]
  - Erythema [None]
  - Pain in extremity [None]
  - Pyrexia [None]
  - Chills [None]
  - Cellulitis [None]
  - Exposure during breast feeding [None]
